FAERS Safety Report 18485506 (Version 1)
Quarter: 2020Q4

REPORT INFORMATION
  Report Type: Spontaneous
  Country: AR (occurrence: AR)
  Receive Date: 20201110
  Receipt Date: 20201110
  Transmission Date: 20210114
  Serious: Yes (Other)
  Sender: FDA-Public Use
  Company Number: AR-PFIZER INC-2020443145

PATIENT
  Age: 30 Year
  Sex: Female

DRUGS (3)
  1. SOMAVERT [Suspect]
     Active Substance: PEGVISOMANT
     Dosage: ALTERNATE DAY (EVERY OTHER DAY)
     Dates: start: 202010, end: 2020
  2. SOMAVERT [Suspect]
     Active Substance: PEGVISOMANT
     Indication: ACROMEGALY
     Dosage: 10 MG 7 TIMES PER WEEK
     Dates: start: 20190805, end: 202010
  3. DESMOPRESIN [Concomitant]
     Active Substance: DESMOPRESSIN
     Dosage: UNK

REACTIONS (3)
  - Intentional product misuse [Unknown]
  - Diabetes insipidus [Unknown]
  - Pituitary tumour [Unknown]

NARRATIVE: CASE EVENT DATE: 202010
